FAERS Safety Report 9746925 (Version 2)
Quarter: 2013Q4

REPORT INFORMATION
  Report Type: Spontaneous
  Country: FR (occurrence: FR)
  Receive Date: 20131211
  Receipt Date: 20131226
  Transmission Date: 20140711
  Serious: Yes (Hospitalization)
  Sender: FDA-Public Use
  Company Number: PHHY2013FR142918

PATIENT
  Age: 75 Year
  Sex: Male

DRUGS (5)
  1. LUCENTIS [Suspect]
     Dosage: UNK UKN, UNK
     Route: 031
     Dates: start: 20130502
  2. LUCENTIS [Suspect]
     Dosage: UNK UKN, UNK
     Route: 031
     Dates: start: 20130627
  3. SIMVASTATIN [Suspect]
     Dosage: 40 MG, QD
     Route: 048
     Dates: start: 20131028
  4. BIPRETERAX [Suspect]
     Dosage: UNK UKN, UNK
     Route: 048
     Dates: start: 20131028
  5. KARDEGIC [Suspect]
     Dosage: 75 MG, UNK
     Route: 048
     Dates: start: 20131028

REACTIONS (2)
  - Ventricular dysfunction [Not Recovered/Not Resolved]
  - Cerebral ischaemia [Not Recovered/Not Resolved]
